FAERS Safety Report 4316178-4 (Version None)
Quarter: 2004Q1

REPORT INFORMATION
  Report Type: 
  Country: None (occurrence: None)
  Receive Date: 20040311
  Receipt Date: 20040311
  Transmission Date: 20041129
  Serious: Yes (Other)
  Sender: FDA-Public Use
  Company Number: None

PATIENT
  Sex: Male
  Weight: 81.6475 kg

DRUGS (2)
  1. HYDROCODONE/APAP 10/325 MALLINCKRODT [Suspect]
     Indication: BACK PAIN
     Dosage: 2 TABLET Q4-6 HOURS ORAL
     Route: 048
  2. HYDROCODONE/APAP 10/325 MALLINCKRODT [Suspect]
     Indication: INTERVERTEBRAL DISC DEGENERATION
     Dosage: 2 TABLET Q4-6 HOURS ORAL
     Route: 048

REACTIONS (4)
  - DRUG EFFECT DECREASED [None]
  - DRUG WITHDRAWAL SYNDROME [None]
  - MEDICATION ERROR [None]
  - PHARMACEUTICAL PRODUCT COMPLAINT [None]
